FAERS Safety Report 5124625-3 (Version None)
Quarter: 2006Q4

REPORT INFORMATION
  Report Type: 
  Country: None (occurrence: None)
  Receive Date: 20061006
  Receipt Date: 20061006
  Transmission Date: 20070319
  Serious: Yes (Life-Threatening, Hospitalization)
  Sender: FDA-Public Use
  Company Number: None

PATIENT
  Sex: Female
  Weight: 52 kg

DRUGS (19)
  1. GLARGINE [Suspect]
     Indication: DIABETES MELLITUS INSULIN-DEPENDENT
     Dosage: 24 UNITS ONCE DAILY SQ
     Route: 058
     Dates: start: 19940101
  2. HUMALOG [Suspect]
     Indication: DIABETES MELLITUS INSULIN-DEPENDENT
     Dosage: 2 UNITS WITH MEALS WITH MEALS SQ
     Route: 058
     Dates: start: 19940101
  3. ACETAMINOPHEN [Concomitant]
  4. MAALOX FAST BLOCKER [Concomitant]
  5. CARVEDILOL [Concomitant]
  6. DIGOXIN [Concomitant]
  7. DILTIAZEM HCL [Concomitant]
  8. RNOXAPARIN [Concomitant]
  9. LEXAPRO [Concomitant]
  10. LEXAPRO [Concomitant]
  11. FLECAINIDE ACETATE [Concomitant]
  12. FUROSEMIDE [Concomitant]
  13. LEVOTHYROXINE SODIUM [Concomitant]
  14. LISINOPRIL [Concomitant]
  15. MIRTAZAPINE [Concomitant]
  16. POTASSIUM CHLORIDE [Concomitant]
  17. PRAMIPEXOLE DIHYDROCHLORIDE [Concomitant]
  18. LANTUS [Concomitant]
  19. HUMALOG [Concomitant]

REACTIONS (5)
  - BLOOD GLUCOSE FLUCTUATION [None]
  - COLD SWEAT [None]
  - CONFUSIONAL STATE [None]
  - HYPERHIDROSIS [None]
  - HYPOGLYCAEMIA [None]
